FAERS Safety Report 8312307-6 (Version None)
Quarter: 2012Q2

REPORT INFORMATION
  Report Type: 
  Country: None (occurrence: None)
  Receive Date: 20120425
  Receipt Date: 20120417
  Transmission Date: 20120825
  Serious: Yes (Other)
  Sender: FDA-Public Use
  Company Number: BE-ELI_LILLY_AND_COMPANY-BE201204006481

PATIENT
  Sex: Male

DRUGS (1)
  1. EFFIENT [Suspect]
     Indication: STENT PLACEMENT
     Dosage: UNK, UNKNOWN

REACTIONS (1)
  - CORONARY ARTERY THROMBOSIS [None]
